FAERS Safety Report 19321830 (Version 1)
Quarter: 2021Q2

REPORT INFORMATION
  Report Type: Report from Study
  Country: NL (occurrence: NL)
  Receive Date: 20210528
  Receipt Date: 20210528
  Transmission Date: 20210717
  Serious: Yes (Other)
  Sender: FDA-Public Use
  Company Number: NL-ROCHE-2557294

PATIENT
  Age: 71 Year
  Sex: Male
  Weight: 95 kg

DRUGS (8)
  1. DEXAMETHASONE. [Concomitant]
     Active Substance: DEXAMETHASONE
  2. VINCRISTINE [Concomitant]
     Active Substance: VINCRISTINE
     Dates: start: 20190420, end: 20190730
  3. CYCLOPHOSPHAMIDE. [Concomitant]
     Active Substance: CYCLOPHOSPHAMIDE
     Dates: start: 20190420, end: 20190730
  4. DOXORUBICIN [Concomitant]
     Active Substance: DOXORUBICIN
     Dates: start: 20190420, end: 20190730
  5. PREDNISONE. [Concomitant]
     Active Substance: PREDNISONE
     Dates: start: 20190420, end: 20190730
  6. CYTARABINE. [Concomitant]
     Active Substance: CYTARABINE
  7. LENALIDOMIDE [Suspect]
     Active Substance: LENALIDOMIDE
     Indication: NON-HODGKIN^S LYMPHOMA
     Dosage: THERAPY WITH LENALIDOMIDE LAST ADMINISTERD DOSE 20/FEB/2020
     Route: 065
     Dates: start: 20191003
  8. RITUXIMAB. [Suspect]
     Active Substance: RITUXIMAB
     Indication: NON-HODGKIN^S LYMPHOMA
     Dosage: THE MOST RECENT DOSE OF RITUXIMAB SC PRIOR TO ONSET OF SAE ON 12/FEB/2020
     Route: 058
     Dates: start: 20191022

REACTIONS (1)
  - Cheilitis granulomatosa [Recovered/Resolved]

NARRATIVE: CASE EVENT DATE: 20200219
